FAERS Safety Report 12469370 (Version 3)
Quarter: 2016Q3

REPORT INFORMATION
  Report Type: Spontaneous
  Country: RU (occurrence: RU)
  Receive Date: 20160615
  Receipt Date: 20160823
  Transmission Date: 20161109
  Serious: Yes (Hospitalization, Other)
  Sender: FDA-Public Use
  Company Number: RU-JNJFOC-20160606572

PATIENT

DRUGS (1)
  1. TOPAMAX [Suspect]
     Active Substance: TOPIRAMATE
     Indication: EPILEPSY
     Route: 048

REACTIONS (8)
  - Obesity [Unknown]
  - Somnolence [Unknown]
  - Encephalopathy [Unknown]
  - Weight decreased [Unknown]
  - Dyspepsia [Unknown]
  - Alopecia [Unknown]
  - Seizure [Unknown]
  - Portal hypertensive gastropathy [Unknown]
